FAERS Safety Report 15654441 (Version 1)
Quarter: 2018Q4

REPORT INFORMATION
  Report Type: Spontaneous
  Country: US (occurrence: US)
  Receive Date: 20181126
  Receipt Date: 20181126
  Transmission Date: 20190205
  Serious: No
  Sender: FDA-Public Use
  Company Number: US-JNJFOC-20181105631

PATIENT
  Sex: Male

DRUGS (4)
  1. NIZORAL A-D [Suspect]
     Active Substance: KETOCONAZOLE
     Indication: SKIN EXFOLIATION
     Route: 061
     Dates: start: 20181102, end: 20181104
  2. NIZORAL A-D [Suspect]
     Active Substance: KETOCONAZOLE
     Indication: SEBORRHOEIC DERMATITIS
     Route: 061
     Dates: start: 20181102, end: 20181104
  3. NEUTROGENA T/SAL THERAPEUTIC [Suspect]
     Active Substance: SALICYLIC ACID
     Indication: SKIN EXFOLIATION
     Route: 061
  4. NEUTROGENA T/SAL THERAPEUTIC [Suspect]
     Active Substance: SALICYLIC ACID
     Indication: SEBORRHOEIC DERMATITIS
     Route: 061

REACTIONS (3)
  - Hyperhidrosis [Unknown]
  - Application site discharge [Unknown]
  - Skin exfoliation [Unknown]

NARRATIVE: CASE EVENT DATE: 20181103
